FAERS Safety Report 9528442 (Version 1)
Quarter: 2013Q3

REPORT INFORMATION
  Report Type: Spontaneous
  Country: US (occurrence: US)
  Receive Date: 20130917
  Receipt Date: 20130917
  Transmission Date: 20140515
  Serious: Yes (Other)
  Sender: FDA-Public Use
  Company Number: US-SANOFI-AVENTIS-2013SA091446

PATIENT
  Age: 42 Year
  Sex: Female

DRUGS (1)
  1. LOVENOX [Suspect]
     Indication: THROMBOSIS
     Route: 065

REACTIONS (8)
  - Mediastinal effusion [Unknown]
  - Cough [Unknown]
  - Skin discolouration [Unknown]
  - Generalised oedema [Unknown]
  - Rash [Unknown]
  - Nausea [Unknown]
  - Abdominal pain [Unknown]
  - Headache [Unknown]
